FAERS Safety Report 15947642 (Version 1)
Quarter: 2019Q1

REPORT INFORMATION
  Report Type: Spontaneous
  Country: CA (occurrence: CA)
  Receive Date: 20190211
  Receipt Date: 20190211
  Transmission Date: 20190417
  Serious: Yes (Other)
  Sender: FDA-Public Use
  Company Number: CA-ELEFSEE PHARMACEUTICALS INTERNATIONAL-CA-2019WTD000006

PATIENT

DRUGS (1)
  1. FENTANYL. [Suspect]
     Active Substance: FENTANYL
     Indication: PRODUCT USED FOR UNKNOWN INDICATION
     Dosage: UNK

REACTIONS (4)
  - Respiratory rate decreased [Unknown]
  - Heart rate decreased [Unknown]
  - Cyanosis [Unknown]
  - Overdose [Unknown]
